FAERS Safety Report 20607725 (Version 1)
Quarter: 2022Q1

REPORT INFORMATION
  Report Type: Spontaneous
  Country: US (occurrence: None)
  Receive Date: 20220317
  Receipt Date: 20220317
  Transmission Date: 20220423
  Serious: No
  Sender: FDA-Public Use
  Company Number: None

PATIENT
  Age: 47 Year
  Sex: Female

DRUGS (1)
  1. AUBAGIO [Suspect]
     Active Substance: TERIFLUNOMIDE
     Indication: Multiple sclerosis
     Dosage: 14MG AFTER COMPLETING DAILY ORAL?
     Route: 048
     Dates: start: 20200820

REACTIONS (2)
  - Multiple sclerosis relapse [None]
  - Muscle spasms [None]

NARRATIVE: CASE EVENT DATE: 20210317
